FAERS Safety Report 5958419-3 (Version None)
Quarter: 2008Q4

REPORT INFORMATION
  Report Type: 
  Country: None (occurrence: None)
  Receive Date: 20081119
  Receipt Date: 20081111
  Transmission Date: 20090506
  Serious: Yes (Hospitalization)
  Sender: FDA-Public Use
  Company Number: HK-JNJFOC-20080204503

PATIENT
  Sex: Female
  Weight: 47.5 kg

DRUGS (1)
  1. PALIPERIDONE [Suspect]
     Indication: SCHIZOPHRENIA
     Route: 048

REACTIONS (3)
  - ANXIETY [None]
  - INSOMNIA [None]
  - RESTLESSNESS [None]
